FAERS Safety Report 6481618-1 (Version None)
Quarter: 2009Q4

REPORT INFORMATION
  Report Type: 
  Country: None (occurrence: None)
  Receive Date: 20091208
  Receipt Date: 20090319
  Transmission Date: 20100525
  Serious: No
  Sender: FDA-Public Use
  Company Number: US-AMGEN-KDL339163

PATIENT
  Sex: Male

DRUGS (1)
  1. ENBREL [Suspect]
     Indication: ERYTHRODERMIC PSORIASIS
     Route: 058
     Dates: start: 20060705

REACTIONS (4)
  - ARTHRALGIA [None]
  - BACK PAIN [None]
  - ERYTHRODERMIC PSORIASIS [None]
  - THERAPEUTIC RESPONSE DECREASED [None]
